FAERS Safety Report 5413680-9 (Version None)
Quarter: 2007Q3

REPORT INFORMATION
  Report Type: 
  Country: None (occurrence: None)
  Receive Date: 20070713
  Receipt Date: 20070501
  Transmission Date: 20080115
  Serious: Yes (Hospitalization)
  Sender: FDA-Public Use
  Company Number: US-JNJFOC-20061100935

PATIENT
  Age: 42 Year
  Sex: Female
  Weight: 63.5036 kg

DRUGS (7)
  1. ORTHO EVRA [Suspect]
     Indication: CONTRACEPTION
     Dosage: 1 DOSE (S), 3 IN 4 WEEK, TRANSDERMAL
     Route: 062
     Dates: start: 20021101, end: 20041123
  2. MEDROXYPROGESTERONE [Suspect]
     Indication: CONTRACEPTION
     Dates: start: 20041129
  3. PAXIL [Concomitant]
  4. LASIX [Concomitant]
  5. KEFLEX [Concomitant]
  6. MOTRIN [Concomitant]
  7. IMMODIUM (LOPERAMIDE HYDROCHLORIDE) [Concomitant]

REACTIONS (4)
  - DEEP VEIN THROMBOSIS [None]
  - NAUSEA [None]
  - PRURITUS [None]
  - PULMONARY EMBOLISM [None]
